FAERS Safety Report 6059899-8 (Version None)
Quarter: 2009Q1

REPORT INFORMATION
  Report Type: 
  Country: None (occurrence: None)
  Receive Date: 20090130
  Receipt Date: 20090102
  Transmission Date: 20090719
  Serious: No
  Sender: FDA-Public Use
  Company Number: US-ABBOTT-09P-163-0495652-00

PATIENT
  Sex: Male
  Weight: 125.3 kg

DRUGS (3)
  1. LUPRON DEPOT [Suspect]
     Indication: PROSTATE CANCER
     Dates: start: 20070101
  2. THEO-DUR [Concomitant]
     Indication: ASTHMA
  3. HYZAAR [Concomitant]
     Indication: BLOOD PRESSURE

REACTIONS (1)
  - WEIGHT INCREASED [None]
